FAERS Safety Report 5171511-9 (Version None)
Quarter: 2006Q4

REPORT INFORMATION
  Report Type: 
  Country: None (occurrence: None)
  Receive Date: 20061213
  Receipt Date: 20060912
  Transmission Date: 20070319
  Serious: Yes (Other)
  Sender: FDA-Public Use
  Company Number: US-AMGEN-US193295

PATIENT
  Sex: Male
  Weight: 88.1 kg

DRUGS (8)
  1. ENBREL [Suspect]
     Indication: PSORIATIC ARTHROPATHY
     Route: 030
     Dates: start: 20050301, end: 20060908
  2. SULFASALAZINE [Concomitant]
  3. PLAQUENIL [Concomitant]
  4. NAPROXEN [Concomitant]
  5. PREVACID [Concomitant]
  6. FLOMAX [Concomitant]
  7. CALCIUM [Concomitant]
  8. VITAMIN CAP [Concomitant]

REACTIONS (2)
  - LYMPHOMA [None]
  - PLATELET COUNT DECREASED [None]
